FAERS Safety Report 6313958-0 (Version None)
Quarter: 2009Q3

REPORT INFORMATION
  Report Type: 
  Country: None (occurrence: None)
  Receive Date: 20090818
  Receipt Date: 20090806
  Transmission Date: 20100115
  Serious: Yes (Hospitalization, Disabling)
  Sender: FDA-Public Use
  Company Number: US-WYE-H02362608

PATIENT
  Sex: Female

DRUGS (3)
  1. EFFEXOR [Suspect]
     Dosage: UNKNOWN TO 2007; THEN 2007 TO MAY-2007
     Route: 048
  2. TYLENOL (CAPLET) [Concomitant]
     Dosage: AS NEEDED
  3. ADVIL [Concomitant]
     Dosage: AS NEEDED

REACTIONS (11)
  - ANAEMIA [None]
  - CHORIORETINOPATHY [None]
  - DRUG HYPERSENSITIVITY [None]
  - GRANULOMA [None]
  - HYPERTENSION [None]
  - HYPOVOLAEMIA [None]
  - LACUNAR INFARCTION [None]
  - RENAL FAILURE ACUTE [None]
  - RENAL FAILURE CHRONIC [None]
  - TRANSIENT ISCHAEMIC ATTACK [None]
  - TUBULOINTERSTITIAL NEPHRITIS [None]
